FAERS Safety Report 9231661 (Version 1)
Quarter: 2013Q2

REPORT INFORMATION
  Report Type: Report from Study
  Country: VE (occurrence: VE)
  Receive Date: 20130415
  Receipt Date: 20130415
  Transmission Date: 20140414
  Serious: Yes (Hospitalization)
  Sender: FDA-Public Use
  Company Number: VE-ROCHE-1214215

PATIENT
  Age: 68 Year
  Sex: Female
  Weight: 69 kg

DRUGS (5)
  1. RITUXIMAB [Suspect]
     Indication: NON-HODGKIN^S LYMPHOMA
     Dosage: PATIENT LAST DOSE ON 10/APR/2013
     Route: 041
     Dates: start: 20130325, end: 20130412
  2. CYCLOPHOSPHAMIDE [Concomitant]
     Indication: NON-HODGKIN^S LYMPHOMA
     Route: 065
  3. DOXORUBICIN [Concomitant]
     Indication: NON-HODGKIN^S LYMPHOMA
     Route: 065
  4. PREDNISONE [Concomitant]
     Indication: NON-HODGKIN^S LYMPHOMA
     Route: 065
  5. VINCRISTINE [Concomitant]
     Indication: NON-HODGKIN^S LYMPHOMA
     Route: 065

REACTIONS (1)
  - Deep vein thrombosis [Not Recovered/Not Resolved]
